FAERS Safety Report 16584862 (Version 2)
Quarter: 2019Q3

REPORT INFORMATION
  Report Type: Spontaneous
  Country: JP (occurrence: JP)
  Receive Date: 20190717
  Receipt Date: 20190805
  Transmission Date: 20191004
  Serious: Yes (Life-Threatening, Hospitalization)
  Sender: FDA-Public Use
  Company Number: JP-CELGENEUS-JAM-20190704786

PATIENT
  Age: 69 Year
  Sex: Male
  Weight: 60.6 kg

DRUGS (6)
  1. ABRAXANE [Suspect]
     Active Substance: PACLITAXEL
     Dosage: 110 MILLIGRAM
     Route: 041
     Dates: start: 20190521, end: 20190604
  2. ABRAXANE [Suspect]
     Active Substance: PACLITAXEL
     Dosage: 110 MILLIGRAM
     Route: 041
     Dates: start: 20190621, end: 20190712
  3. RAMUCIRUMAB [Concomitant]
     Active Substance: RAMUCIRUMAB
     Indication: METASTATIC GASTRIC CANCER
     Dosage: 400 MILLIGRAM
     Route: 041
     Dates: start: 20190423, end: 20190423
  4. RAMUCIRUMAB [Concomitant]
     Active Substance: RAMUCIRUMAB
     Dosage: 350 MILLIGRAM
     Route: 041
     Dates: start: 20190621, end: 20190712
  5. ABRAXANE [Suspect]
     Active Substance: PACLITAXEL
     Indication: METASTATIC GASTRIC CANCER
     Dosage: 130 MILLIGRAM
     Route: 041
     Dates: start: 20190423, end: 20190430
  6. RAMUCIRUMAB [Concomitant]
     Active Substance: RAMUCIRUMAB
     Dosage: 350 MILLIGRAM
     Route: 041
     Dates: start: 20190521, end: 20190604

REACTIONS (1)
  - Febrile neutropenia [Recovering/Resolving]

NARRATIVE: CASE EVENT DATE: 20190506
